FAERS Safety Report 8618963-7 (Version None)
Quarter: 2012Q3

REPORT INFORMATION
  Report Type: 
  Country: None (occurrence: None)
  Receive Date: 20120824
  Receipt Date: 20120814
  Transmission Date: 20120928
  Serious: Yes (Hospitalization, Other)
  Sender: FDA-Public Use
  Company Number: PHHY2012FR071385

PATIENT
  Sex: Male

DRUGS (18)
  1. TRANXENE [Suspect]
     Dosage: 5 MG, IN THE EVENING
     Dates: start: 20120306
  2. SPASFON [Concomitant]
     Dosage: 2 DF, TID
  3. CHLORPROMAZINE HCL [Concomitant]
     Dosage: 50 DRP, TID
  4. ACETAMINOPHEN [Concomitant]
     Dosage: 1 G, TID
  5. SANDOSTATIN [Suspect]
     Dates: start: 20120201, end: 20120301
  6. ARIXTRA [Suspect]
     Dates: start: 20120101
  7. CODEINE SYRUP [Suspect]
  8. IMODIUM [Suspect]
     Dosage: 2 DF, TID
     Dates: end: 20120301
  9. QUETIAPINE [Suspect]
     Dosage: 600 MG, 1H BEFORE THE DINNER
     Dates: start: 20120206
  10. ATARAX [Suspect]
  11. ESOMEPRAZOLE SODIUM [Suspect]
     Dosage: 40 MG, DAILY
     Dates: start: 20120306
  12. QUETIAPINE [Suspect]
     Dosage: 600 MG, IN THE EVENING
     Dates: start: 20120306
  13. HALOPERIDOL LACTATE [Concomitant]
  14. SANDOSTATIN [Suspect]
     Dosage: 100 MCG , BID
     Dates: start: 20120306, end: 20120301
  15. ARIXTRA [Suspect]
     Dosage: 2.5 MG, DAILY
     Dates: start: 20120306, end: 20120301
  16. AUGMENTIN '500' [Concomitant]
     Indication: SHOCK
  17. TRANXENE [Suspect]
     Dosage: 50 MG, TID
     Dates: start: 20120101, end: 20120301
  18. IMODIUM [Suspect]
     Dosage: 3 DF, QID
     Dates: start: 20120306

REACTIONS (17)
  - HYPOALBUMINAEMIA [None]
  - GASTROINTESTINAL DISORDER [None]
  - LYMPHADENOPATHY [None]
  - ABDOMINAL PAIN [None]
  - BLOOD IRON DECREASED [None]
  - GASTROINTESTINAL ULCER [None]
  - TRANSFERRIN SATURATION DECREASED [None]
  - INTESTINAL OBSTRUCTION [None]
  - COLONIC STENOSIS [None]
  - BLOOD MAGNESIUM DECREASED [None]
  - DIARRHOEA [None]
  - IMPAIRED GASTRIC EMPTYING [None]
  - ABDOMINAL DISTENSION [None]
  - INTESTINAL ISCHAEMIA [None]
  - GASTROINTESTINAL STENOSIS [None]
  - THROMBOSIS [None]
  - SMALL INTESTINAL STENOSIS [None]
